FAERS Safety Report 5570424-8 (Version None)
Quarter: 2007Q4

REPORT INFORMATION
  Report Type: 
  Country: None (occurrence: None)
  Receive Date: 20071221
  Receipt Date: 20071220
  Transmission Date: 20080405
  Serious: Yes (Death)
  Sender: FDA-Public Use
  Company Number: PHHO2007TR02654

PATIENT
  Age: 84 Year
  Sex: Male
  Weight: 61 kg

DRUGS (7)
  1. ZOLEDRONIC ACID [Suspect]
     Indication: OSTEOPOROTIC FRACTURE
     Dosage: DOUBLE-BLINDED
     Route: 042
     Dates: start: 20050202
  2. ZOLEDRONIC ACID [Suspect]
     Dosage: 5MG, ONCE YEARLY
  3. CALCIUM CARBONATE [Concomitant]
     Indication: OSTEOPOROTIC FRACTURE
  4. VITAMIN D [Concomitant]
     Indication: OSTEOPOROTIC FRACTURE
  5. FRAGMIN [Concomitant]
     Indication: THROMBOSIS PROPHYLAXIS
     Dates: start: 20050101
  6. DISPRIL [Concomitant]
     Indication: CARDIOVASCULAR EVENT PROPHYLAXIS
     Dates: start: 20030101
  7. INSULIN [Concomitant]

REACTIONS (3)
  - CARDIAC FAILURE [None]
  - DIABETES MELLITUS [None]
  - GENERAL PHYSICAL HEALTH DETERIORATION [None]
